FAERS Safety Report 18198441 (Version 2)
Quarter: 2020Q3

REPORT INFORMATION
  Report Type: Report from Study
  Country: ES (occurrence: ES)
  Receive Date: 20200826
  Receipt Date: 20200910
  Transmission Date: 20201103
  Serious: Yes (Hospitalization)
  Sender: FDA-Public Use
  Company Number: ES-MYLANLABS-2020M1072898

PATIENT
  Age: 78 Year
  Sex: Female

DRUGS (4)
  1. NOLOTIL                            /06276702/ [Concomitant]
     Active Substance: METAMIZOLE MAGNESIUM
     Indication: PRODUCT USED FOR UNKNOWN INDICATION
     Dosage: UNK
  2. TERIPARATIDE [Suspect]
     Active Substance: TERIPARATIDE
     Indication: OSTEOPOROSIS
     Dosage: 20 MICROGRAM, QD
     Route: 058
     Dates: start: 20200521
  3. EXXIV [Suspect]
     Active Substance: ETORICOXIB
     Indication: PRODUCT USED FOR UNKNOWN INDICATION
     Dosage: UNK UNK
     Route: 065
  4. TRAMADOL. [Suspect]
     Active Substance: TRAMADOL
     Indication: PRODUCT USED FOR UNKNOWN INDICATION
     Dosage: UNK
     Route: 065

REACTIONS (8)
  - Joint swelling [Recovering/Resolving]
  - Fluid retention [Recovering/Resolving]
  - Osteonecrosis [Not Recovered/Not Resolved]
  - Kyphosis [Unknown]
  - Lumbar vertebral fracture [Unknown]
  - Tremor [Not Recovered/Not Resolved]
  - Fracture displacement [Unknown]
  - Bone fissure [Not Recovered/Not Resolved]

NARRATIVE: CASE EVENT DATE: 202006
